FAERS Safety Report 7722225-X (Version None)
Quarter: 2011Q3

REPORT INFORMATION
  Report Type: 
  Country: None (occurrence: None)
  Receive Date: 20110831
  Receipt Date: 20110825
  Transmission Date: 20111222
  Serious: Yes (Other)
  Sender: FDA-Public Use
  Company Number: US-PFIZER INC-2011107910

PATIENT
  Sex: Female

DRUGS (2)
  1. XALATAN [Suspect]
     Indication: GLAUCOMA
     Dosage: 1 GTT IN BOTH EYES, 1X/DAY
     Route: 047
     Dates: start: 20100113, end: 20110105
  2. ALPHAGAN [Concomitant]
     Indication: GLAUCOMA
     Dosage: 1 GTT IN BOTH EYES, 3X/DAY
     Route: 047
     Dates: start: 20100707, end: 20100824

REACTIONS (3)
  - NIGHTMARE [None]
  - EYE OPERATION [None]
  - POOR QUALITY SLEEP [None]
